FAERS Safety Report 25709826 (Version 1)
Quarter: 2025Q3

REPORT INFORMATION
  Report Type: Report from Study
  Country: US (occurrence: US)
  Receive Date: 20250821
  Receipt Date: 20250821
  Transmission Date: 20251021
  Serious: No
  Sender: SUNOVION
  Company Number: US-SUMITOMO PHARMA SWITZERLAND GMBH-2025SPA010465

PATIENT
  Age: 82 Year
  Sex: Male

DRUGS (22)
  1. ORGOVYX [Suspect]
     Active Substance: RELUGOLIX
     Indication: Prostate cancer
     Route: 048
     Dates: start: 20250808, end: 20250808
  2. ORGOVYX [Suspect]
     Active Substance: RELUGOLIX
     Route: 048
  3. ASPIRIN [Concomitant]
     Active Substance: ASPIRIN
  4. ATORVASTATIN [Concomitant]
     Active Substance: ATORVASTATIN
  5. CALTRATE WITH VITAMIN D [Concomitant]
     Active Substance: CALCIUM CARBONATE\CHOLECALCIFEROL
  6. CARVEDILOL [Concomitant]
     Active Substance: CARVEDILOL
  7. ENTRESTO [Concomitant]
     Active Substance: SACUBITRIL\VALSARTAN
  8. FIBERTAB [Concomitant]
     Active Substance: CALCIUM POLYCARBOPHIL
  9. GLUCOSAMINE [Concomitant]
     Active Substance: GLUCOSAMINE
  10. ISOSORBIDE DINITRATE [Concomitant]
     Active Substance: ISOSORBIDE DINITRATE
  11. JARDIANCE [Concomitant]
     Active Substance: EMPAGLIFLOZIN
  12. KERENDIA [Concomitant]
     Active Substance: FINERENONE
  13. LEUPROLIDE ACETATE [Concomitant]
     Active Substance: LEUPROLIDE ACETATE
  14. LOSARTAN [Concomitant]
     Active Substance: LOSARTAN
  15. MAGNESIUM OXIDE [Concomitant]
     Active Substance: MAGNESIUM OXIDE
  16. MELATONIN [Concomitant]
     Active Substance: MELATONIN
  17. OZEMPIC [Concomitant]
     Active Substance: SEMAGLUTIDE
  18. RANOLAZINE [Concomitant]
     Active Substance: RANOLAZINE
  19. Renal Vite Plus [Concomitant]
  20. SYSTANE (HYPROMELLOSE 2910 (4000 MPA.S)) [Concomitant]
     Active Substance: HYPROMELLOSE 2910 (4000 MPA.S)
  21. VITAMIN B12 [Concomitant]
     Active Substance: CYANOCOBALAMIN
  22. XARELTO [Concomitant]
     Active Substance: RIVAROXABAN

REACTIONS (1)
  - Diarrhoea [Unknown]
